FAERS Safety Report 9859682 (Version 2)
Quarter: 2014Q1

REPORT INFORMATION
  Report Type: Report from Study
  Country: CL (occurrence: CL)
  Receive Date: 20140131
  Receipt Date: 20140204
  Transmission Date: 20141002
  Serious: Yes (Hospitalization)
  Sender: FDA-Public Use
  Company Number: PHHY2013CL155415

PATIENT
  Sex: Female

DRUGS (2)
  1. GLIVEC [Suspect]
     Indication: CHROMOSOME ANALYSIS ABNORMAL
     Dosage: 600 MG, UNK
     Route: 048
     Dates: start: 20131022
  2. GLIVEC [Suspect]
     Indication: ACUTE LYMPHOCYTIC LEUKAEMIA
     Dosage: 400 MG, UNK

REACTIONS (1)
  - Inappropriate antidiuretic hormone secretion [Recovered/Resolved]
